FAERS Safety Report 18869240 (Version 3)
Quarter: 2021Q2

REPORT INFORMATION
  Report Type: Spontaneous
  Country: FR (occurrence: FR)
  Receive Date: 20210209
  Receipt Date: 20210407
  Transmission Date: 20210717
  Serious: Yes (Other)
  Sender: FDA-Public Use
  Company Number: NVSC2021FR026422

PATIENT
  Age: 73 Year
  Sex: Male

DRUGS (2)
  1. MOMETASONE FUROATE. [Suspect]
     Active Substance: MOMETASONE FUROATE
     Indication: PRODUCT USED FOR UNKNOWN INDICATION
     Dosage: 2 DRP, QD (DROP (1/12 MILLILITRE))
     Route: 065
  2. ATROVENT [Suspect]
     Active Substance: IPRATROPIUM BROMIDE
     Indication: VASOMOTOR RHINITIS
     Dosage: Q12H (DOSE: NOT PROVIDED, BID, NOON AND EVENING)
     Route: 065
     Dates: start: 20200120, end: 20200120

REACTIONS (1)
  - Erectile dysfunction [Unknown]
